FAERS Safety Report 7623208-0 (Version None)
Quarter: 2011Q3

REPORT INFORMATION
  Report Type: 
  Country: None (occurrence: None)
  Receive Date: 20110720
  Receipt Date: 20110713
  Transmission Date: 20111222
  Serious: Yes (Death, Other)
  Sender: FDA-Public Use
  Company Number: PHHY2011DE63493

PATIENT
  Sex: Female
  Weight: 103 kg

DRUGS (8)
  1. BISOPROLOL [Suspect]
     Indication: HYPERTENSION
     Dosage: 10 MG/DAY
     Route: 048
     Dates: start: 20080710
  2. ACE INHIBITORS [Concomitant]
     Dosage: UNK UKN, UNK
     Dates: end: 20091207
  3. CALCIUM CHANNEL BLOCKERS [Concomitant]
     Dosage: UNK UKN, UNK
  4. OLMESARTAN MEDOXOMIL [Suspect]
     Indication: HYPERTENSION
     Dosage: 40 MG/DAY
     Route: 048
     Dates: start: 20100610
  5. TORSEMIDE [Suspect]
     Dosage: 10 MG/DAY
     Dates: start: 20100820
  6. ENOXAPARIN SODIUM [Suspect]
     Indication: ATRIAL FIBRILLATION
     Dosage: 100 MG/DAY
     Route: 058
     Dates: start: 20101108
  7. ANGIOTENSIN RECEPTOR BLOCKER (OTHER THAN VALSARTAN) [Concomitant]
     Dosage: UNK UKN, UNK
     Dates: start: 20091207
  8. ALISKIREN [Suspect]
     Indication: HYPERTENSION
     Dosage: 300 MG/DAY
     Route: 048
     Dates: start: 20081106

REACTIONS (4)
  - SUDDEN CARDIAC DEATH [None]
  - ELECTROCARDIOGRAM QT PROLONGED [None]
  - HEART RATE DECREASED [None]
  - ELECTROCARDIOGRAM QRS COMPLEX PROLONGED [None]
